FAERS Safety Report 16926157 (Version 5)
Quarter: 2019Q4

REPORT INFORMATION
  Report Type: Report from Study
  Country: US (occurrence: US)
  Receive Date: 20191016
  Receipt Date: 20191115
  Transmission Date: 20200122
  Serious: Yes (Hospitalization)
  Sender: FDA-Public Use
  Company Number: US-SHIRE-US201934174

PATIENT
  Age: 51 Year
  Sex: Male
  Weight: 79.37 kg

DRUGS (11)
  1. OPIUM TINCTURE [Concomitant]
     Active Substance: MORPHINE
     Indication: DIARRHOEA
  2. TEDUGLUTIDE [Suspect]
     Active Substance: TEDUGLUTIDE
     Indication: SHORT-BOWEL SYNDROME
     Dosage: 4.3 MILLIGRAM, (TED DAILY DOSE MG KG 0.05 MG/KG, TED DOSES PER WEEK 7 DOSES PER WEEK)
     Route: 065
     Dates: start: 20171117, end: 20171130
  3. OMEPRAZOLE. [Concomitant]
     Active Substance: OMEPRAZOLE
     Indication: GASTROOESOPHAGEAL REFLUX DISEASE
  4. LEVOFLOXACIN. [Concomitant]
     Active Substance: LEVOFLOXACIN
     Indication: BACTERAEMIA
  5. TEDUGLUTIDE [Suspect]
     Active Substance: TEDUGLUTIDE
     Dosage: 3.8 MILLIGRAM, (TED DAILY DOSE MG KG 0.04 MILLIGRAM/KILLOGRAM, TED DOSES PER WEEK 7 DOSES PER WEEK)
     Route: 065
     Dates: start: 20191010
  6. TEDUGLUTIDE [Suspect]
     Active Substance: TEDUGLUTIDE
     Dosage: 3.8 MILLIGRAM, (TED DAILY DOSE MG KG 0.04 MILLIGRAM/KILLOGRAM, TED DOSES PER WEEK 7 DOSES PER WEEK)
     Route: 065
     Dates: start: 201807, end: 20191003
  7. VANCOMYCIN [Concomitant]
     Active Substance: VANCOMYCIN
     Indication: STAPHYLOCOCCAL INFECTION
  8. BACTRIM [Concomitant]
     Active Substance: SULFAMETHOXAZOLE\TRIMETHOPRIM
     Indication: BACTERAEMIA
  9. FERROUS SULFATE. [Concomitant]
     Active Substance: FERROUS SULFATE
     Indication: ANAEMIA
  10. LOMOTIL [LOPERAMIDE HYDROCHLORIDE] [Concomitant]
     Indication: DIARRHOEA
  11. ATIVAN [Concomitant]
     Active Substance: LORAZEPAM
     Indication: SCHIZOPHRENIA

REACTIONS (2)
  - Short-bowel syndrome [Not Recovered/Not Resolved]
  - Malnutrition [Recovered/Resolved]

NARRATIVE: CASE EVENT DATE: 20191003
